FAERS Safety Report 6369638-9 (Version None)
Quarter: 2009Q3

REPORT INFORMATION
  Report Type: 
  Country: None (occurrence: None)
  Receive Date: 20090918
  Receipt Date: 20090909
  Transmission Date: 20100115
  Serious: Yes (Life-Threatening, Hospitalization, Other)
  Sender: FDA-Public Use
  Company Number: 2009AP003155

PATIENT
  Age: 83 Year
  Sex: Female
  Weight: 92.9874 kg

DRUGS (3)
  1. TORSEMIDE [Suspect]
     Indication: CARDIAC FAILURE CONGESTIVE
     Dosage: 80 MG; QD; PO, 120 MG; QD; PO
     Route: 048
     Dates: end: 20090610
  2. TORSEMIDE [Suspect]
     Indication: CARDIAC FAILURE CONGESTIVE
     Dosage: 80 MG; QD; PO, 120 MG; QD; PO
     Route: 048
     Dates: start: 20090325
  3. SPIRONOLACTONE [Concomitant]

REACTIONS (2)
  - DRUG INEFFECTIVE [None]
  - FLUID RETENTION [None]
